FAERS Safety Report 8176791-3 (Version None)
Quarter: 2012Q1

REPORT INFORMATION
  Report Type: 
  Country: None (occurrence: None)
  Receive Date: 20120301
  Receipt Date: 20111229
  Transmission Date: 20120608
  Serious: Yes (Death, Life-Threatening, Hospitalization)
  Sender: FDA-Public Use
  Company Number: CA-JNJFOC-20111209868

PATIENT
  Sex: Male
  Weight: 75.9 kg

DRUGS (9)
  1. METHOTREXATE [Concomitant]
     Route: 065
  2. FOLIC ACID [Concomitant]
     Route: 065
  3. REMICADE [Suspect]
     Route: 042
     Dates: start: 20041020, end: 20111026
  4. CALCIUM [Concomitant]
     Route: 065
  5. COLESTID [Concomitant]
     Route: 065
  6. TESTOSTERONE [Concomitant]
     Route: 065
  7. REMICADE [Suspect]
     Indication: CROHN'S DISEASE
     Route: 042
     Dates: start: 20040302
  8. METRONIDAZOLE HYDROCHLORIDE [Concomitant]
     Route: 065
  9. VITAMIN B-12 [Concomitant]
     Route: 065

REACTIONS (1)
  - CEREBROVASCULAR ACCIDENT [None]
